FAERS Safety Report 7608776-7 (Version None)
Quarter: 2011Q3

REPORT INFORMATION
  Report Type: 
  Country: None (occurrence: None)
  Receive Date: 20110713
  Receipt Date: 20110713
  Transmission Date: 20111222
  Serious: Yes (Other)
  Sender: FDA-Public Use
  Company Number: None

PATIENT
  Age: 75 Year
  Sex: Female

DRUGS (7)
  1. REVLIMID [Suspect]
     Indication: MULTIPLE MYELOMA
     Dosage: 10 MG DAILY X21D/28D ORALLY
     Route: 048
     Dates: start: 20110617, end: 20110707
  2. CLOPIDOGREL [Concomitant]
  3. ATENOLOL [Concomitant]
  4. TRAZODONE [Concomitant]
  5. ASPIRIN [Concomitant]
  6. SIMVASTATIN [Concomitant]
  7. LISINOPRIL [Concomitant]

REACTIONS (2)
  - URINARY TRACT INFECTION [None]
  - DIARRHOEA [None]
